FAERS Safety Report 7448090-6 (Version None)
Quarter: 2011Q2

REPORT INFORMATION
  Report Type: 
  Country: None (occurrence: None)
  Receive Date: 20110429
  Receipt Date: 20110221
  Transmission Date: 20111010
  Serious: No
  Sender: FDA-Public Use
  Company Number: US-ASTRAZENECA-2009SE07664

PATIENT
  Age: 82 Year
  Sex: Male
  Weight: 79.4 kg

DRUGS (4)
  1. NEXIUM [Suspect]
     Route: 048
  2. NEXIUM [Suspect]
     Indication: ULCER
     Route: 048
  3. NEXIUM [Suspect]
     Indication: GASTROOESOPHAGEAL REFLUX DISEASE
     Route: 048
  4. NEXIUM [Suspect]
     Route: 048

REACTIONS (4)
  - OESOPHAGEAL ULCER [None]
  - VISUAL IMPAIRMENT [None]
  - TYPE 2 DIABETES MELLITUS [None]
  - CHEST PAIN [None]
